FAERS Safety Report 9506999 (Version 1)
Quarter: 2013Q3

REPORT INFORMATION
  Report Type: Spontaneous
  Country: PT (occurrence: PT)
  Receive Date: 20130909
  Receipt Date: 20130909
  Transmission Date: 20140515
  Serious: Yes (Other)
  Sender: FDA-Public Use
  Company Number: PT-ABBOTT-13X-130-1141594-00

PATIENT
  Age: 22 Year
  Sex: Female
  Weight: 58.5 kg

DRUGS (2)
  1. KLACID [Suspect]
     Indication: GASTROENTEROSTOMY
     Route: 048
     Dates: start: 20130724, end: 20130802
  2. KLACID [Suspect]
     Indication: WISDOM TEETH REMOVAL

REACTIONS (6)
  - Swelling face [Recovered/Resolved]
  - Dyspnoea [Recovered/Resolved]
  - Back pain [Recovered/Resolved]
  - Tongue oedema [Recovered/Resolved]
  - Malaise [Recovered/Resolved]
  - Chest pain [Recovered/Resolved]
